FAERS Safety Report 9515507 (Version 1)
Quarter: 2013Q3

REPORT INFORMATION
  Report Type: Spontaneous
  Country: IT (occurrence: None)
  Receive Date: 20130909
  Receipt Date: 20130909
  Transmission Date: 20140515
  Serious: Yes (Hospitalization)
  Sender: FDA-Public Use
  Company Number: 2013P1018990

PATIENT
  Age: 44 Year
  Sex: Male

DRUGS (1)
  1. OXCARBAZEPINE [Suspect]
     Indication: JUVENILE MYOCLONIC EPILEPSY

REACTIONS (2)
  - Status epilepticus [None]
  - Myoclonus [None]
